FAERS Safety Report 15341753 (Version 2)
Quarter: 2018Q4

REPORT INFORMATION
  Report Type: Spontaneous
  Country: AU (occurrence: AU)
  Receive Date: 20180901
  Receipt Date: 20180914
  Transmission Date: 20190204
  Serious: Yes (Death, Life-Threatening, Hospitalization, Other)
  Sender: FDA-Public Use
  Company Number: AU-ACCORD-071162

PATIENT
  Age: 55 Year
  Sex: Female

DRUGS (2)
  1. CARBOPLATIN. [Suspect]
     Active Substance: CARBOPLATIN
     Indication: OVARIAN CANCER STAGE III
     Dosage: 385 MG/BODY, THREE WEEKLY CYCLE
  2. PACLITAXEL/PACLITAXEL LIPOSOME [Suspect]
     Active Substance: PACLITAXEL
     Indication: OVARIAN CANCER STAGE III
     Dosage: THREE WEEKLY CYCLE

REACTIONS (6)
  - Pneumatosis [Unknown]
  - Respiratory disorder [Unknown]
  - Escherichia infection [Unknown]
  - Septic shock [Unknown]
  - Rectal perforation [Fatal]
  - Neutropenic colitis [Unknown]
